FAERS Safety Report 8399753-X (Version None)
Quarter: 2012Q2

REPORT INFORMATION
  Report Type: 
  Country: None (occurrence: None)
  Receive Date: 20120531
  Receipt Date: 20120521
  Transmission Date: 20120825
  Serious: Yes (Hospitalization)
  Sender: FDA-Public Use
  Company Number: FR-PFIZER INC-2012060528

PATIENT
  Age: 56 Year
  Sex: Female

DRUGS (1)
  1. AXITINIB [Suspect]
     Indication: COLORECTAL CANCER METASTATIC
     Dosage: 5 MG, 2X/DAY
     Route: 048
     Dates: start: 20120223, end: 20120229

REACTIONS (4)
  - GENERAL PHYSICAL HEALTH DETERIORATION [None]
  - THROMBOCYTOPENIA [None]
  - ASTHENIA [None]
  - OCULAR ICTERUS [None]
